FAERS Safety Report 7057569-0 (Version None)
Quarter: 2010Q4

REPORT INFORMATION
  Report Type: 
  Country: None (occurrence: None)
  Receive Date: 20101021
  Receipt Date: 20101021
  Transmission Date: 20110411
  Serious: Yes (Hospitalization)
  Sender: FDA-Public Use
  Company Number: None

PATIENT
  Sex: Female
  Weight: 43.2 kg

DRUGS (6)
  1. ONCASPAR [Suspect]
     Dosage: 3425 UNIT
     Dates: end: 20100920
  2. PREDNISONE [Suspect]
     Dosage: 1680 MG
     Dates: end: 20101007
  3. VINCRISTINE SULFATE [Suspect]
     Dosage: 6 MG
     Dates: end: 20101001
  4. CYTARABINE [Suspect]
     Dosage: 70 MG
     Dates: end: 20100917
  5. DAUNORUBICIN HCL [Suspect]
     Dosage: 102 MG
     Dates: start: 20101001
  6. METHOTREXATE [Suspect]
     Dosage: 15 MG
     Dates: end: 20100924

REACTIONS (2)
  - BLOOD BILIRUBIN INCREASED [None]
  - BLOOD GLUCOSE INCREASED [None]
